FAERS Safety Report 22176182 (Version 1)
Quarter: 2023Q2

REPORT INFORMATION
  Report Type: Spontaneous
  Country: US (occurrence: None)
  Receive Date: 20230404
  Receipt Date: 20230404
  Transmission Date: 20230721
  Serious: No
  Sender: FDA-Public Use
  Company Number: None

PATIENT
  Sex: Male

DRUGS (1)
  1. HUMIRA [Suspect]
     Active Substance: ADALIMUMAB
     Indication: Crohn^s disease
     Dosage: 40MG ONCE WEEKLY SUBCUTANEOUS?
     Route: 058
     Dates: start: 202201

REACTIONS (4)
  - Device malfunction [None]
  - Drug dose omission by device [None]
  - Crohn^s disease [None]
  - Device leakage [None]
